FAERS Safety Report 25749989 (Version 3)
Quarter: 2025Q3

REPORT INFORMATION
  Report Type: Report from Study
  Country: KR (occurrence: KR)
  Receive Date: 20250902
  Receipt Date: 20250923
  Transmission Date: 20251020
  Serious: Yes (Hospitalization)
  Sender: ABBVIE
  Company Number: KR-ABBVIE-6213074

PATIENT
  Age: 66 Year
  Sex: Male
  Weight: 55 kg

DRUGS (16)
  1. RINVOQ [Suspect]
     Active Substance: UPADACITINIB
     Indication: Colitis ulcerative
     Dosage: FILM-COATED TABLET
     Route: 048
     Dates: start: 20250116, end: 20250507
  2. RINVOQ [Suspect]
     Active Substance: UPADACITINIB
     Indication: Colitis ulcerative
     Dosage: FILM-COATED TABLET
     Route: 048
     Dates: start: 20250508, end: 20250827
  3. RINVOQ [Suspect]
     Active Substance: UPADACITINIB
     Indication: Colitis ulcerative
     Dosage: FILM-COATED TABLET
     Route: 048
     Dates: start: 20250828
  4. MESALAMINE [Concomitant]
     Active Substance: MESALAMINE
     Indication: Colitis ulcerative
     Dosage: ECT, FORM STRENGTH: 1200 MG
     Route: 048
     Dates: start: 20240208
  5. ASACOL [Concomitant]
     Active Substance: MESALAMINE
     Indication: Colitis ulcerative
     Dosage: FORM STRENGTH: 500 MG
     Route: 054
     Dates: start: 20240208, end: 20250407
  6. Solondo [Concomitant]
     Indication: Colitis ulcerative
     Route: 048
     Dates: start: 20250109, end: 20250115
  7. Solondo [Concomitant]
     Indication: Colitis ulcerative
     Route: 048
     Dates: start: 20250220, end: 20250224
  8. Solondo [Concomitant]
     Indication: Colitis ulcerative
     Route: 048
     Dates: start: 20250206, end: 20250212
  9. Solondo [Concomitant]
     Indication: Colitis ulcerative
     Route: 048
     Dates: start: 20250213, end: 20250219
  10. Solondo [Concomitant]
     Indication: Colitis ulcerative
     Route: 048
     Dates: start: 20250116, end: 20250205
  11. Solondo [Concomitant]
     Indication: Colitis ulcerative
     Route: 048
     Dates: start: 20250225, end: 20250302
  12. Feroba you sr [Concomitant]
     Indication: Prophylaxis
     Route: 048
     Dates: start: 20241212
  13. Polybutin [Concomitant]
     Indication: Colitis ulcerative
     Dosage: STRENGTH: 300MG, SR
     Route: 048
     Dates: start: 20240912
  14. Bioflor [Concomitant]
     Indication: Colitis ulcerative
     Dosage: 250
     Route: 048
     Dates: start: 20240912
  15. TD [Concomitant]
     Active Substance: CLOSTRIDIUM TETANI TOXOID ANTIGEN (FORMALDEHYDE INACTIVATED)\CORYNEBACTERIUM DIPHTHERIAE TOXOID ANTI
     Indication: Prophylaxis
     Route: 030
     Dates: start: 20250723, end: 20250723
  16. Bestase [Concomitant]
     Indication: Colitis ulcerative
     Route: 048
     Dates: start: 20250116

REACTIONS (4)
  - Local reaction [Recovered/Resolved]
  - Acne [Recovered/Resolved]
  - Asthenia [Recovered/Resolved]
  - Snake bite [Recovered/Resolved]

NARRATIVE: CASE EVENT DATE: 20250201
